FAERS Safety Report 9581004 (Version 1)
Quarter: 2013Q4

REPORT INFORMATION
  Report Type: Spontaneous
  Country: US (occurrence: None)
  Receive Date: 20131001
  Receipt Date: 20131001
  Transmission Date: 20140711
  Serious: Yes (Other)
  Sender: FDA-Public Use
  Company Number: None

PATIENT
  Age: 56 Year
  Sex: Female
  Weight: 78.93 kg

DRUGS (11)
  1. LIVALO [Suspect]
     Indication: BLOOD CHOLESTEROL INCREASED
     Route: 048
     Dates: start: 20130611, end: 20130901
  2. VITAMIN D-2 CAPS (ERGOCALCIFER) [Concomitant]
  3. SINGULAIR [Concomitant]
  4. CENTRUM SILVER [Suspect]
  5. OSCAL CALCIUM [Concomitant]
  6. FISH OIL [Concomitant]
  7. FLAXSEED OIL [Concomitant]
  8. MEGARED KRILL OIL [Concomitant]
  9. ALLEGRA [Concomitant]
  10. TRIPLE FLEX (GLUCOSAMINE/CHONDROITIN/MSM) [Concomitant]
  11. COQ10 [Concomitant]

REACTIONS (11)
  - Arthralgia [None]
  - Musculoskeletal stiffness [None]
  - Groin pain [None]
  - Movement disorder [None]
  - Back pain [None]
  - Bone pain [None]
  - Burning sensation [None]
  - Myalgia [None]
  - Sensory disturbance [None]
  - Abdominal pain [None]
  - Feeling abnormal [None]
